FAERS Safety Report 7214640-8 (Version None)
Quarter: 2011Q1

REPORT INFORMATION
  Report Type: 
  Country: None (occurrence: None)
  Receive Date: 20110105
  Receipt Date: 20110105
  Transmission Date: 20110831
  Serious: Yes (Disabling)
  Sender: FDA-Public Use
  Company Number: None

PATIENT
  Age: 43 Year
  Sex: Female
  Weight: 53.5244 kg

DRUGS (1)
  1. CIPRO [Suspect]
     Indication: URINARY TRACT INFECTION
     Dosage: 2 X DAY 3 DAYS PO
     Route: 048
     Dates: start: 20101220, end: 20101223

REACTIONS (6)
  - PAIN [None]
  - TENDONITIS [None]
  - GAIT DISTURBANCE [None]
  - JAW DISORDER [None]
  - ARTHRALGIA [None]
  - MYALGIA [None]
